FAERS Safety Report 21995076 (Version 1)
Quarter: 2023Q1

REPORT INFORMATION
  Report Type: Spontaneous
  Country: US (occurrence: US)
  Receive Date: 20230215
  Receipt Date: 20230215
  Transmission Date: 20230418
  Serious: No
  Sender: FDA-Public Use
  Company Number: US-PFIZER INC-PV202200121112

PATIENT

DRUGS (2)
  1. NURTEC ODT [Interacting]
     Active Substance: RIMEGEPANT SULFATE
     Dosage: UNK
  2. LYRICA [Interacting]
     Active Substance: PREGABALIN
     Dosage: UNK

REACTIONS (5)
  - Drug interaction [Unknown]
  - Gallbladder disorder [Unknown]
  - Panic attack [Unknown]
  - Drug hypersensitivity [Unknown]
  - Heart rate increased [Unknown]

NARRATIVE: CASE EVENT DATE: 20221212
